FAERS Safety Report 14018615 (Version 1)
Quarter: 2017Q3

REPORT INFORMATION
  Report Type: Spontaneous
  Country: GB (occurrence: GB)
  Receive Date: 20170928
  Receipt Date: 20170928
  Transmission Date: 20171128
  Serious: Yes (Other)
  Sender: FDA-Public Use
  Company Number: GB-AUROBINDO-AUR-APL-2017-40900

PATIENT
  Age: 24 Year
  Sex: Female
  Weight: 96 kg

DRUGS (2)
  1. VENLAFAXINE [Suspect]
     Active Substance: VENLAFAXINE HYDROCHLORIDE
     Indication: DEPRESSION
     Dosage: 37.5 MG, TWO TIMES A DAY
     Dates: start: 20170405, end: 20170617
  2. SAYANA [Concomitant]
     Active Substance: MEDROXYPROGESTERONE
     Indication: CONTRACEPTION
     Route: 058
     Dates: start: 20170526

REACTIONS (2)
  - Mood swings [Unknown]
  - Aggression [Unknown]
